FAERS Safety Report 10047239 (Version 2)
Quarter: 2014Q2

REPORT INFORMATION
  Report Type: Spontaneous
  Country: US (occurrence: US)
  Receive Date: 20140331
  Receipt Date: 20140507
  Transmission Date: 20141212
  Serious: Yes (Hospitalization)
  Sender: FDA-Public Use
  Company Number: US-BAYER-2014-048073

PATIENT
  Age: 31 Year
  Sex: Female
  Weight: 58.96 kg

DRUGS (9)
  1. MIRENA [Suspect]
     Indication: MENORRHAGIA
     Dosage: 20 MCG/24HR, CONT
     Route: 015
     Dates: start: 20110714, end: 20120609
  2. MIRENA [Suspect]
     Indication: MENORRHAGIA
     Dosage: 20 MCG/24HR, CONT
     Route: 015
     Dates: start: 20110616
  3. CIPRO [Concomitant]
     Indication: PAIN
     Dosage: 500 MG, 2 TIMES A DAY FOR 7 DAYS
     Route: 048
  4. CIPRO [Concomitant]
     Indication: URINARY TRACT INFECTION
  5. BUSPAR [Concomitant]
     Dosage: 15 MG, 1/2 TO 1 PILL 2 TIMES A DAY
     Route: 048
  6. ALBUTEROL INHALER [Concomitant]
     Indication: DYSPNOEA
     Dosage: 1-2 PUFFS EVERY 4-6 HOURS AS NEEDED
  7. NAPROSYN [Concomitant]
     Dosage: 220 MG, 2 TIMES A DAY
  8. CRANBERRY [Concomitant]
     Dosage: DAILY
  9. PRILOSEC [Concomitant]
     Dosage: UNK UNK, BID

REACTIONS (6)
  - Uterine perforation [None]
  - Injury [None]
  - Uterine pain [None]
  - Emotional distress [None]
  - Device breakage [None]
  - Adnexa uteri pain [None]
